FAERS Safety Report 10575697 (Version 1)
Quarter: 2014Q4

REPORT INFORMATION
  Report Type: Spontaneous
  Country: US (occurrence: US)
  Receive Date: 20141111
  Receipt Date: 20141111
  Transmission Date: 20150529
  Serious: No
  Sender: FDA-Public Use
  Company Number: US-PFIZER INC-2014305133

PATIENT

DRUGS (2)
  1. KEPPRA [Suspect]
     Active Substance: LEVETIRACETAM
     Dosage: 1500 MG, UNK
  2. DILANTIN-125 [Suspect]
     Active Substance: PHENYTOIN
     Dosage: 350 MG, UNK

REACTIONS (4)
  - Pain [Unknown]
  - Asthenia [Unknown]
  - Chills [Unknown]
  - Fatigue [Unknown]
